FAERS Safety Report 26101122 (Version 1)
Quarter: 2025Q4

REPORT INFORMATION
  Report Type: Spontaneous
  Country: US (occurrence: US)
  Receive Date: 20251128
  Receipt Date: 20251128
  Transmission Date: 20260118
  Serious: Yes (Other)
  Sender: AKEBIA THERAPEUTICS
  Company Number: US-AKEBIA THERAPEUTICS, INC.-US-AKEB-25-000529

PATIENT
  Age: 62 Year
  Sex: Male

DRUGS (1)
  1. VADADUSTAT [Suspect]
     Active Substance: VADADUSTAT
     Indication: Product used for unknown indication
     Dosage: UNK
     Route: 065

REACTIONS (3)
  - Renal transplant [Unknown]
  - Haemoglobin decreased [Unknown]
  - Product use issue [Unknown]

NARRATIVE: CASE EVENT DATE: 20251003
